FAERS Safety Report 17879546 (Version 1)
Quarter: 2020Q2

REPORT INFORMATION
  Report Type: Spontaneous
  Country: CA (occurrence: CA)
  Receive Date: 20200610
  Receipt Date: 20200610
  Transmission Date: 20200714
  Serious: Yes (Life-Threatening, Hospitalization)
  Sender: FDA-Public Use
  Company Number: CA-ACCORD-184693

PATIENT
  Age: 2 Year
  Sex: Female
  Weight: 15 kg

DRUGS (2)
  1. METHOTREXATE. [Suspect]
     Active Substance: METHOTREXATE
     Indication: PRODUCT USED FOR UNKNOWN INDICATION
     Dosage: INJECTION USP WITH PRESERVATIVE (MULTIDOSE VIALS), SOLUTION INTRA- ARTERIAL, FREQUENCY ONCE.
     Route: 037
  2. VINCRISTINE [Concomitant]
     Active Substance: VINCRISTINE
     Dosage: INJECTION USP

REACTIONS (3)
  - Neutropenia [Unknown]
  - Pyrexia [Unknown]
  - Parainfluenzae virus infection [Unknown]
